FAERS Safety Report 15583219 (Version 2)
Quarter: 2019Q2

REPORT INFORMATION
  Report Type: Other
  Country: CA (occurrence: CA)
  Receive Date: 20181105
  Receipt Date: 20190606
  Transmission Date: 20190711
  Serious: Yes (Other)
  Sender: FDA-Public Use
  Company Number: CA-HLSUS-2018-CA-001650

PATIENT
  Age: 35 Year
  Sex: Female

DRUGS (2)
  1. CLOZARIL [Suspect]
     Active Substance: CLOZAPINE
     Indication: SCHIZOPHRENIA
     Dosage: 375MG 1 EVERY 24 HOURS
     Route: 048
  2. LAX-A-DAY [Concomitant]
     Route: 048

REACTIONS (2)
  - Sinus tachycardia [Unknown]
  - Chest pain [Unknown]
